FAERS Safety Report 19772545 (Version 1)
Quarter: 2021Q3

REPORT INFORMATION
  Report Type: Spontaneous
  Country: NL (occurrence: NL)
  Receive Date: 20210901
  Receipt Date: 20210901
  Transmission Date: 20211014
  Serious: Yes (Other)
  Sender: FDA-Public Use
  Company Number: NL-MYLANLABS-2021M1057087

PATIENT
  Sex: Male
  Weight: 90 kg

DRUGS (2)
  1. DESLORATADINE. [Concomitant]
     Active Substance: DESLORATADINE
     Dosage: TABLET, 5 MG (MILLIGRAM)
  2. PANTOPRAZOLE MYLAN [Suspect]
     Active Substance: PANTOPRAZOLE SODIUM
     Indication: PRODUCT USED FOR UNKNOWN INDICATION
     Dosage: ZO NODIG 1 X PER DAG 1 TABLET
     Dates: start: 202012

REACTIONS (3)
  - Somnolence [Not Recovered/Not Resolved]
  - Eye pain [Not Recovered/Not Resolved]
  - Hallucination [Not Recovered/Not Resolved]
